FAERS Safety Report 15021186 (Version 1)
Quarter: 2018Q2

REPORT INFORMATION
  Report Type: Spontaneous
  Country: IT (occurrence: IT)
  Receive Date: 20180618
  Receipt Date: 20180618
  Transmission Date: 20180711
  Serious: Yes (Death)
  Sender: FDA-Public Use
  Company Number: IT-MYLANLABS-2018M1041178

PATIENT
  Age: 23 Year
  Sex: Female

DRUGS (6)
  1. ETOPOSIDE. [Concomitant]
     Active Substance: ETOPOSIDE
     Indication: OSTEOSARCOMA
     Dosage: ADMINISTERED IN TWO DOSES
     Route: 065
  2. ADRIAMYCIN [Concomitant]
     Active Substance: DOXORUBICIN HYDROCHLORIDE
     Indication: OSTEOSARCOMA
     Route: 065
  3. METHOTREXATE. [Suspect]
     Active Substance: METHOTREXATE
     Indication: OSTEOSARCOMA
     Dosage: 12 G/M2 ADMINISTERED IN TWO DOSES
     Route: 065
  4. CISPLATIN. [Concomitant]
     Active Substance: CISPLATIN
     Indication: OSTEOSARCOMA
     Dosage: ADMINISTERED IN TWO DOSES
     Route: 065
  5. MIFAMURTIDE [Concomitant]
     Active Substance: MIFAMURTIDE
     Indication: OSTEOSARCOMA
     Dosage: ADMINISTERED IN TWO DOSES
     Route: 065
  6. IFOSFAMIDE. [Concomitant]
     Active Substance: IFOSFAMIDE
     Indication: OSTEOSARCOMA
     Route: 065

REACTIONS (7)
  - Toxicity to various agents [Fatal]
  - Dysphagia [Unknown]
  - Pneumonia [Fatal]
  - Toxic epidermal necrolysis [Fatal]
  - Bone marrow failure [Fatal]
  - Pseudomonal sepsis [Fatal]
  - Hepatic failure [Fatal]
